FAERS Safety Report 4633018-4 (Version None)
Quarter: 2005Q2

REPORT INFORMATION
  Report Type: 
  Country: None (occurrence: None)
  Receive Date: 20050412
  Receipt Date: 20050329
  Transmission Date: 20051028
  Serious: Yes (Hospitalization)
  Sender: FDA-Public Use
  Company Number: US-GLAXOSMITHKLINE-A0551639A

PATIENT
  Age: 60 Year
  Sex: Female
  Weight: 45.5 kg

DRUGS (8)
  1. CITRUCEL REGULAR SUSPENSION [Suspect]
     Indication: GASTROINTESTINAL DISORDER
     Route: 048
     Dates: start: 19961001, end: 20050322
  2. ZANTAC [Concomitant]
     Dosage: 150MG PER DAY
     Route: 048
  3. EVISTA [Concomitant]
     Indication: OSTEOPOROSIS
     Dosage: 60MG PER DAY
     Route: 048
  4. LORAZEPAM [Concomitant]
     Indication: ANXIETY
     Dosage: 2MG TWICE PER DAY
     Route: 048
  5. PROBIOTICS [Concomitant]
     Indication: NUTRITIONAL SUPPORT
     Route: 048
  6. FLINTSTONE VITAMINS [Concomitant]
     Route: 048
  7. ALBUTEROL [Concomitant]
     Indication: ASTHMA
     Dosage: 90MCG AS REQUIRED
     Route: 055
  8. ADVAIR DISKUS 100/50 [Concomitant]
     Indication: ASTHMA
     Route: 055

REACTIONS (10)
  - ABDOMINAL ADHESIONS [None]
  - ABDOMINAL HERNIA [None]
  - CORONARY ARTERY STENOSIS [None]
  - DIARRHOEA [None]
  - DYSPNOEA [None]
  - FEELING ABNORMAL [None]
  - FREQUENT BOWEL MOVEMENTS [None]
  - INTESTINAL OBSTRUCTION [None]
  - PRURITUS ANI [None]
  - VOMITING [None]
